FAERS Safety Report 9234489 (Version 1)
Quarter: 2013Q2

REPORT INFORMATION
  Report Type: Spontaneous
  Country: US (occurrence: US)
  Receive Date: 20130416
  Receipt Date: 20130416
  Transmission Date: 20140414
  Serious: Yes (Other)
  Sender: FDA-Public Use
  Company Number: US-GLAXOSMITHKLINE-A1020258A

PATIENT
  Age: 69 Year
  Sex: Male

DRUGS (1)
  1. FLOLAN [Suspect]
     Indication: COR PULMONALE CHRONIC
     Dosage: 21NGKM CONTINUOUS
     Route: 042
     Dates: start: 20120530

REACTIONS (1)
  - Enteritis infectious [Unknown]
